FAERS Safety Report 9908667 (Version 1)
Quarter: 2014Q1

REPORT INFORMATION
  Report Type: Spontaneous
  Country: IT (occurrence: IT)
  Receive Date: 20140219
  Receipt Date: 20140219
  Transmission Date: 20141002
  Serious: Yes (Hospitalization)
  Sender: FDA-Public Use
  Company Number: IT-BAYER-2014-022500

PATIENT
  Age: 59 Year
  Sex: Male

DRUGS (2)
  1. ASPIRINA [Suspect]
     Indication: INFLUENZA
     Dosage: UNK
     Dates: start: 20131223, end: 20131223
  2. SPIRIVA [Concomitant]
     Indication: ASTHMA
     Dosage: UNK
     Dates: start: 20130101, end: 20131228

REACTIONS (2)
  - Erythema [Unknown]
  - Rash [Unknown]
